FAERS Safety Report 8446768-9 (Version None)
Quarter: 2012Q2

REPORT INFORMATION
  Report Type: 
  Country: None (occurrence: None)
  Receive Date: 20120619
  Receipt Date: 20120608
  Transmission Date: 20120825
  Serious: No
  Sender: FDA-Public Use
  Company Number: US-BIOGENIDEC-2012BI020767

PATIENT
  Sex: Female

DRUGS (2)
  1. TYSABRI [Suspect]
     Indication: MULTIPLE SCLEROSIS
     Route: 042
     Dates: start: 20110127, end: 20120412
  2. VITAMIN D [Concomitant]

REACTIONS (9)
  - VULVOVAGINAL DRYNESS [None]
  - ANGER [None]
  - MULTIPLE SCLEROSIS RELAPSE [None]
  - ADVERSE DRUG REACTION [None]
  - GAIT DISTURBANCE [None]
  - FUNGAL INFECTION [None]
  - DRUG INEFFECTIVE [None]
  - CHEST DISCOMFORT [None]
  - GENERAL SYMPTOM [None]
